FAERS Safety Report 5480502-X (Version None)
Quarter: 2007Q4

REPORT INFORMATION
  Report Type: 
  Country: None (occurrence: None)
  Receive Date: 20071009
  Receipt Date: 20071001
  Transmission Date: 20080405
  Serious: Yes (Hospitalization)
  Sender: FDA-Public Use
  Company Number: FI-ASTRAZENECA-2007SE05278

PATIENT
  Age: 40 Year
  Sex: Male

DRUGS (1)
  1. QUETIAPINE FUMARATE [Suspect]
     Dosage: PATIENT MIGHT HAVE TAKEN 40 TABLETS OF 300 MG QUETIAPINE
     Route: 048

REACTIONS (2)
  - INTENTIONAL OVERDOSE [None]
  - PNEUMONIA ASPIRATION [None]
